FAERS Safety Report 19264723 (Version 4)
Quarter: 2021Q2

REPORT INFORMATION
  Report Type: Report from Study
  Country: US (occurrence: US)
  Receive Date: 20210517
  Receipt Date: 20210624
  Transmission Date: 20210717
  Serious: Yes (Life-Threatening, Hospitalization, Other)
  Sender: FDA-Public Use
  Company Number: US-BRISTOL-MYERS SQUIBB COMPANY-BMS-2021-047228

PATIENT
  Age: 17 Year
  Sex: Male
  Weight: 127 kg

DRUGS (4)
  1. K27M PEPTIDE VACCINE [Suspect]
     Active Substance: INVESTIGATIONAL PRODUCT
     Indication: GLIOMA
     Dosage: 0.8 MILLILITER, Q6WK
     Route: 065
     Dates: start: 20200610
  2. NIVOLUMAB [Suspect]
     Active Substance: NIVOLUMAB
     Indication: GLIOMA
     Dosage: 360 MILLIGRAM, Q3WK
     Route: 065
     Dates: start: 20200610
  3. TETANUS TOXOID ADSORBED (VACCINE) [Suspect]
     Active Substance: CLOSTRIDIUM TETANI TOXOID ANTIGEN (FORMALDEHYDE INACTIVATED)
     Indication: GLIOMA
     Dosage: 0.8 MILLILITER, Q6WK
     Route: 065
     Dates: start: 20200610
  4. POLY ICLC [Suspect]
     Active Substance: HILTONOL
     Indication: GLIOMA
     Dosage: 3.6 MILLIGRAM, Q6WK
     Route: 065
     Dates: start: 20200610

REACTIONS (2)
  - Thrombosis [Recovered/Resolved]
  - Acute respiratory distress syndrome [Recovered/Resolved]

NARRATIVE: CASE EVENT DATE: 20210319
